FAERS Safety Report 9420389 (Version 2)
Quarter: 2013Q3

REPORT INFORMATION
  Report Type: Spontaneous
  Country: DE (occurrence: None)
  Receive Date: 20130723
  Receipt Date: 20130826
  Transmission Date: 20140515
  Serious: Yes (Other)
  Sender: FDA-Public Use
  Company Number: ACO_37446_2013

PATIENT
  Age: 51 Year
  Sex: Female

DRUGS (5)
  1. FAMPYRA [Suspect]
     Indication: MULTIPLE SCLEROSIS
     Route: 048
     Dates: start: 20130502, end: 20130622
  2. COPAXONE (GLATIRAMER ACETATE) [Concomitant]
  3. THYRONAJOD (LEVOTHYROXINE SODIUM, POTASSIUM IODIDE) [Concomitant]
  4. MAGNESIUM VERLA (MAGNESIUM CITRATE, MAGNESIUM GLUTAMATE, MAGNESIUM NICOTINATE) [Concomitant]
  5. METOPROLOL (METPROLOL TARTRATE) [Concomitant]

REACTIONS (2)
  - Carotid artery stenosis [None]
  - Carotid artery occlusion [None]
